FAERS Safety Report 7225343-8 (Version None)
Quarter: 2011Q1

REPORT INFORMATION
  Report Type: 
  Country: None (occurrence: None)
  Receive Date: 20110113
  Receipt Date: 20110104
  Transmission Date: 20110831
  Serious: Yes (Hospitalization)
  Sender: FDA-Public Use
  Company Number: CA-JNJFOC-20101001368

PATIENT
  Age: 61 Year
  Sex: Male
  Weight: 77 kg

DRUGS (9)
  1. MELOXICAM [Suspect]
     Indication: RHEUMATOID ARTHRITIS
     Route: 048
  2. METOPROLOL [Concomitant]
  3. PLAQUENIL [Concomitant]
  4. ASPIRIN [Suspect]
     Indication: CARDIOVASCULAR DISORDER
     Route: 048
  5. SIMVASTATIN [Concomitant]
  6. METHOTREXATE [Concomitant]
     Indication: RHEUMATOID ARTHRITIS
  7. ENALAPRIL [Concomitant]
  8. FOLIC ACID [Concomitant]
  9. GOLIMUMAB [Suspect]
     Indication: RHEUMATOID ARTHRITIS
     Route: 058

REACTIONS (2)
  - PNEUMONIA [None]
  - GASTRIC ULCER HAEMORRHAGE [None]
